FAERS Safety Report 8912369 (Version 2)
Quarter: 2012Q4

REPORT INFORMATION
  Report Type: 
  Country: DE (occurrence: DE)
  Receive Date: 20121115
  Receipt Date: 20121123
  Transmission Date: 20130627
  Serious: Yes (Other)
  Sender: FDA-Public Use
  Company Number: DE-PFIZER INC-2012282120

PATIENT
  Age: 38 Year
  Sex: Male

DRUGS (2)
  1. LYRICA [Suspect]
     Indication: DEPENDENCE ON OPIATES
     Dosage: 300 mg, 1x/day
     Route: 048
     Dates: end: 2012
  2. LEVOMETHADONE [Concomitant]
     Indication: DEPENDENCE ON OPIATES
     Dosage: UNK
     Route: 048
     Dates: start: 200207

REACTIONS (13)
  - Oedema [Unknown]
  - Oliguria [Unknown]
  - Condition aggravated [Unknown]
  - Withdrawal syndrome [Unknown]
  - Nervousness [Unknown]
  - Hyperkinesia [Unknown]
  - Sleep disorder [Unknown]
  - Back pain [Unknown]
  - Asthenia [Unknown]
  - Apathy [Unknown]
  - Hyperhidrosis [Unknown]
  - Dependence [Unknown]
  - Listless [Unknown]
